FAERS Safety Report 19488185 (Version 13)
Quarter: 2023Q1

REPORT INFORMATION
  Report Type: Report from Study
  Country: US (occurrence: US)
  Receive Date: 20210702
  Receipt Date: 20230330
  Transmission Date: 20230417
  Serious: Yes (Hospitalization, Other)
  Sender: FDA-Public Use
  Company Number: US-TAKEDA-2021TUS038825

PATIENT
  Age: 74 Year
  Sex: Male

DRUGS (36)
  1. TEDUGLUTIDE [Suspect]
     Active Substance: TEDUGLUTIDE
     Indication: Short-bowel syndrome
     Dosage: 1.7 MILLIGRAM, QD
     Route: 042
     Dates: start: 20200816
  2. TEDUGLUTIDE [Suspect]
     Active Substance: TEDUGLUTIDE
     Indication: Short-bowel syndrome
     Dosage: 1.7 MILLIGRAM, QD
     Route: 042
     Dates: start: 20200816
  3. TEDUGLUTIDE [Suspect]
     Active Substance: TEDUGLUTIDE
     Indication: Short-bowel syndrome
     Dosage: 1.7 MILLIGRAM, QD
     Route: 042
     Dates: start: 20200816
  4. TEDUGLUTIDE [Suspect]
     Active Substance: TEDUGLUTIDE
     Indication: Short-bowel syndrome
     Dosage: 1.7 MILLIGRAM, QD
     Route: 042
     Dates: start: 20200816
  5. VORICONAZOLE [Concomitant]
     Active Substance: VORICONAZOLE
     Indication: Endophthalmitis
     Dosage: 0.1 MILLIGRAM
     Route: 058
     Dates: start: 20210316, end: 20210316
  6. APIXABAN [Concomitant]
     Active Substance: APIXABAN
     Indication: Atrial fibrillation
     Dosage: 5 MILLIGRAM, BID
     Route: 048
     Dates: start: 20210211
  7. NICOTINAMIDE [Concomitant]
     Active Substance: NIACINAMIDE
     Indication: Hypovitaminosis
     Dosage: 500 MILLIGRAM, BID
     Route: 048
     Dates: start: 20181008
  8. TUMS [Concomitant]
     Active Substance: CALCIUM CARBONATE
     Indication: Short-bowel syndrome
     Dosage: 500 MILLIGRAM
     Route: 048
     Dates: start: 20201028
  9. VITAMIN D3 [Concomitant]
     Active Substance: CHOLECALCIFEROL
     Indication: Hypovitaminosis
     Dosage: UNK UNK, QD
     Route: 048
     Dates: start: 20181010, end: 20210209
  10. VITAMIN D3 [Concomitant]
     Active Substance: CHOLECALCIFEROL
     Indication: Mineral deficiency
     Dosage: 3000 INTERNATIONAL UNIT, BID
     Route: 048
     Dates: start: 20210922
  11. VITAMIN D3 [Concomitant]
     Active Substance: CHOLECALCIFEROL
     Indication: Malnutrition
  12. ELIQUIS [Concomitant]
     Active Substance: APIXABAN
     Indication: Atrial fibrillation
     Dosage: 5 MILLIGRAM
     Route: 048
     Dates: start: 20181010, end: 20210209
  13. CALCIUM CITRATE [Concomitant]
     Active Substance: CALCIUM CITRATE
     Indication: Malnutrition
     Dosage: 200 MILLIGRAM, QD
     Route: 048
     Dates: start: 20181010, end: 20210209
  14. COREG [Concomitant]
     Active Substance: CARVEDILOL
     Indication: Atrial fibrillation
     Dosage: 3.13 MILLIGRAM, BID
     Route: 048
     Dates: start: 20190117, end: 20210209
  15. CYANOCOBALAMIN [Concomitant]
     Active Substance: CYANOCOBALAMIN
     Indication: Short-bowel syndrome
     Dosage: 1000 MICROGRAM
     Route: 030
     Dates: start: 20181010, end: 20210209
  16. MULTAQ [Concomitant]
     Active Substance: DRONEDARONE
     Indication: Hypotension
     Dosage: 400 MILLIGRAM, BID
     Route: 048
     Dates: start: 20181010, end: 20210309
  17. FAMOTIDINE [Concomitant]
     Active Substance: FAMOTIDINE
     Indication: Short-bowel syndrome
     Dosage: 20 MILLIGRAM, BID
     Route: 048
     Dates: start: 20181016, end: 20210209
  18. FERROUS SULFATE [Concomitant]
     Active Substance: FERROUS SULFATE
     Indication: Electrolyte imbalance
     Dosage: 648 MILLIGRAM, BID
     Route: 048
     Dates: start: 20181010, end: 20210209
  19. EFUDEX [Concomitant]
     Active Substance: FLUOROURACIL
     Indication: Skin papilloma
     Dosage: UNK
     Route: 061
     Dates: start: 20180926, end: 20190610
  20. FLUOROURACIL [Concomitant]
     Active Substance: FLUOROURACIL
     Indication: Actinic keratosis
     Dosage: 10 MILLILITER
     Route: 061
     Dates: start: 20190311, end: 20210209
  21. FOLVITE [Concomitant]
     Active Substance: FOLIC ACID
     Indication: Malnutrition
     Dosage: 1 MILLIGRAM, QD
     Route: 048
     Dates: start: 20181010, end: 20210209
  22. GLUTAMINE [Concomitant]
     Active Substance: GLUTAMINE
     Indication: Short-bowel syndrome
     Dosage: UNK
     Route: 048
     Dates: start: 20181010, end: 20210209
  23. ALDARA [Concomitant]
     Active Substance: IMIQUIMOD
     Indication: Actinic keratosis
     Dosage: UNK
     Route: 061
     Dates: start: 20190311, end: 20190329
  24. LACTATED RINGERS SOLUTION [Concomitant]
     Active Substance: CALCIUM CHLORIDE\POTASSIUM CHLORIDE\SODIUM CHLORIDE\SODIUM LACTATE
     Indication: Electrolyte imbalance
     Dosage: UNK
     Route: 042
     Dates: start: 20181010
  25. LACTOBACILLUS ACIDOPHILUS [Concomitant]
     Active Substance: LACTOBACILLUS ACIDOPHILUS
     Indication: Short-bowel syndrome
     Dosage: UNK
     Route: 048
     Dates: start: 20181010
  26. RESTORA [Concomitant]
     Indication: Hypovolaemia
     Dosage: UNK UNK, QD
     Route: 048
     Dates: start: 20190408
  27. IMODIUM A-D [Concomitant]
     Active Substance: LOPERAMIDE HYDROCHLORIDE
     Indication: Short-bowel syndrome
     Dosage: 4 MILLIGRAM
     Route: 048
     Dates: start: 20181010
  28. MELATONIN [Concomitant]
     Active Substance: MELATONIN
     Indication: Short-bowel syndrome
     Dosage: 5 MILLIGRAM
     Route: 048
     Dates: start: 20181010
  29. BACTROBAN [Concomitant]
     Active Substance: MUPIROCIN\MUPIROCIN CALCIUM
     Indication: Bacterial disease carrier
     Dosage: UNK UNK, TID
     Route: 061
     Dates: start: 20181010
  30. NIACINAMIDE [Concomitant]
     Active Substance: NIACINAMIDE
     Indication: Skin cancer
     Dosage: 900 MILLIGRAM, QD
     Route: 048
     Dates: start: 20181114
  31. CREON [Concomitant]
     Active Substance: PANCRELIPASE AMYLASE\PANCRELIPASE LIPASE\PANCRELIPASE PROTEASE
     Indication: Short-bowel syndrome
     Dosage: UNK UNK, TID
     Route: 048
     Dates: start: 20180905
  32. SODIUM CHLORIDE [Concomitant]
     Active Substance: SODIUM CHLORIDE
     Indication: Hypovolaemia
     Dosage: UNK
     Route: 042
     Dates: start: 20181010
  33. RETIN-A [Concomitant]
     Active Substance: TRETINOIN
     Indication: Skin cancer
     Dosage: 45 GRAM
     Route: 061
     Dates: start: 20181013
  34. VITAMIN E [Concomitant]
     Active Substance: .ALPHA.-TOCOPHEROL
     Indication: Short-bowel syndrome
     Dosage: UNK
     Route: 048
     Dates: start: 20190117
  35. ZINCATE [Concomitant]
     Indication: Short-bowel syndrome
     Dosage: 220 MILLIGRAM, QD
     Route: 048
     Dates: start: 20181010
  36. LOPERAMIDE [Concomitant]
     Active Substance: LOPERAMIDE
     Indication: Diarrhoea
     Dosage: 2.5 MILLIGRAM, QD
     Route: 048
     Dates: start: 20191023

REACTIONS (18)
  - Vascular device infection [Recovered/Resolved]
  - Hypokalaemia [Recovered/Resolved with Sequelae]
  - Hypoalbuminaemia [Recovered/Resolved with Sequelae]
  - Activated partial thromboplastin time shortened [Recovered/Resolved]
  - Sepsis [Recovered/Resolved with Sequelae]
  - Thrombocytopenia [Recovered/Resolved]
  - Atrial fibrillation [Recovered/Resolved]
  - Hypoglycaemia [Recovered/Resolved with Sequelae]
  - Aspartate aminotransferase increased [Recovered/Resolved with Sequelae]
  - Urinary tract infection [Recovered/Resolved]
  - Hypocalcaemia [Recovered/Resolved]
  - Anaemia [Recovered/Resolved]
  - Central venous catheterisation [Recovered/Resolved with Sequelae]
  - Pleural effusion [Recovered/Resolved]
  - Hypertriglyceridaemia [Recovered/Resolved]
  - Mycotic endophthalmitis [Recovered/Resolved]
  - Hyperbilirubinaemia [Recovered/Resolved]
  - Transaminases increased [Recovered/Resolved]

NARRATIVE: CASE EVENT DATE: 20210209
